FAERS Safety Report 4534437-7 (Version None)
Quarter: 2004Q4

REPORT INFORMATION
  Report Type: 
  Country: None (occurrence: None)
  Receive Date: 20041222
  Receipt Date: 20041123
  Transmission Date: 20050328
  Serious: Yes (Other)
  Sender: FDA-Public Use
  Company Number: 200419105US

PATIENT
  Age: 23 Year
  Sex: Male

DRUGS (2)
  1. KETEK [Suspect]
     Dosage: DOSE: UNK
  2. ZYRTEC-D 12 HOUR [Suspect]
     Dosage: DOSE: UNK

REACTIONS (2)
  - ATRIOVENTRICULAR BLOCK SECOND DEGREE [None]
  - LOSS OF CONSCIOUSNESS [None]
